FAERS Safety Report 10247016 (Version 3)
Quarter: 2014Q3

REPORT INFORMATION
  Report Type: Spontaneous
  Country: IT (occurrence: None)
  Receive Date: 20140617
  Receipt Date: 20140808
  Transmission Date: 20150326
  Serious: Yes (Hospitalization, Other)
  Sender: FDA-Public Use
  Company Number: 2014IT004947

PATIENT
  Age: 81 Year
  Sex: Male

DRUGS (3)
  1. COUMADIN [Concomitant]
     Active Substance: WARFARIN SODIUM
  2. ELIGARD [Suspect]
     Active Substance: LEUPROLIDE ACETATE
     Indication: PROSTATE CANCER RECURRENT
     Route: 058
     Dates: start: 20130901, end: 20131230
  3. ALLOPURINOL (ALLOPURINOL) [Concomitant]
     Active Substance: ALLOPURINOL

REACTIONS (4)
  - Blindness transient [None]
  - Decreased appetite [None]
  - Chest pain [None]
  - Diarrhoea [None]

NARRATIVE: CASE EVENT DATE: 20140315
